FAERS Safety Report 9752964 (Version 1)
Quarter: 2013Q4

REPORT INFORMATION
  Report Type: Report from Study
  Country: GB (occurrence: GB)
  Receive Date: 20131213
  Receipt Date: 20131213
  Transmission Date: 20140711
  Serious: Yes (Other)
  Sender: FDA-Public Use
  Company Number: GB-JNJFOC-20131203806

PATIENT
  Age: 38 Year
  Sex: Female
  Weight: 76.6 kg

DRUGS (7)
  1. SIMPONI [Suspect]
     Indication: SPONDYLITIS
     Route: 058
     Dates: start: 20120925, end: 20130826
  2. PARACETAMOL [Concomitant]
     Indication: SPONDYLITIS
     Route: 065
     Dates: start: 20091007
  3. NAPROXEN [Concomitant]
     Indication: SPONDYLITIS
     Route: 065
     Dates: start: 20100805
  4. AMITRIPTYLINE [Concomitant]
     Indication: NEURALGIA
     Route: 065
     Dates: start: 20090101
  5. LANSOPRAZOLE [Concomitant]
     Indication: GASTROINTESTINAL DISORDER THERAPY
     Route: 065
     Dates: start: 20090101
  6. HYPROMELLOSE [Concomitant]
     Indication: DRY EYE
     Route: 065
     Dates: start: 20110101
  7. FERROUS SULFATE [Concomitant]
     Indication: ANAEMIA
     Route: 065
     Dates: start: 20110703

REACTIONS (4)
  - Thyroid disorder [Unknown]
  - Lower respiratory tract infection [Recovering/Resolving]
  - Costochondritis [Unknown]
  - Ankylosing spondylitis [Unknown]
